FAERS Safety Report 5628529-9 (Version None)
Quarter: 2008Q1

REPORT INFORMATION
  Report Type: 
  Country: None (occurrence: None)
  Receive Date: 20080215
  Receipt Date: 20080206
  Transmission Date: 20080703
  Serious: Yes (Hospitalization, Disabling, Other)
  Sender: FDA-Public Use
  Company Number: US-PFIZER INC-2008009662

PATIENT
  Sex: Male
  Weight: 120.2 kg

DRUGS (4)
  1. VIAGRA [Suspect]
     Indication: BACK PAIN
  2. VIAGRA [Suspect]
     Indication: ARTHRALGIA
  3. TUMS [Concomitant]
  4. ALL OTHER THERAPEUTIC PRODUCTS [Concomitant]

REACTIONS (13)
  - CHEST DISCOMFORT [None]
  - CHEST PAIN [None]
  - DEAFNESS UNILATERAL [None]
  - DIABETES MELLITUS [None]
  - DIZZINESS [None]
  - HEADACHE [None]
  - LOSS OF CONSCIOUSNESS [None]
  - MOTION SICKNESS [None]
  - MUSCULOSKELETAL PAIN [None]
  - NASAL CONGESTION [None]
  - PAIN [None]
  - RHINORRHOEA [None]
  - VISION BLURRED [None]
